FAERS Safety Report 5928974-8 (Version None)
Quarter: 2008Q4

REPORT INFORMATION
  Report Type: 
  Country: None (occurrence: None)
  Receive Date: 20081024
  Receipt Date: 20081020
  Transmission Date: 20090506
  Serious: Yes (Life-Threatening)
  Sender: FDA-Public Use
  Company Number: US-ROCHE-591344

PATIENT
  Sex: Female
  Weight: 58.1 kg

DRUGS (5)
  1. BONIVA [Suspect]
     Indication: OSTEOPOROSIS
     Route: 042
     Dates: start: 20081007, end: 20081007
  2. LIPITOR [Concomitant]
     Dosage: FREQUENCY: DAILY
     Route: 048
     Dates: start: 20060101
  3. TOPROL-XL [Concomitant]
     Indication: HYPERTENSION
     Dosage: FREQUENCY: DAILY
     Route: 048
     Dates: start: 20060101
  4. ASPIRIN [Concomitant]
     Indication: CORONARY ARTERY DISEASE
     Dosage: FREQUENCY: DAILY
     Route: 048
     Dates: start: 20060101
  5. PAXIL [Concomitant]
     Indication: ANXIETY
     Dosage: FREQUENCY: DAILY
     Route: 048
     Dates: start: 20060101

REACTIONS (1)
  - THROMBOSIS [None]
